FAERS Safety Report 15576418 (Version 1)
Quarter: 2018Q4

REPORT INFORMATION
  Report Type: Spontaneous
  Country: FR (occurrence: FR)
  Receive Date: 20181101
  Receipt Date: 20181101
  Transmission Date: 20190205
  Serious: Yes (Death, Other)
  Sender: FDA-Public Use
  Company Number: FR-MYLANLABS-2018M1082666

PATIENT
  Age: 74 Year
  Sex: Female

DRUGS (3)
  1. TACROLIMUS MONOHYDRATE [Interacting]
     Active Substance: TACROLIMUS
     Indication: RENAL TRANSPLANT
     Dosage: 16 MG, QD
     Route: 048
     Dates: start: 2007, end: 20140317
  2. BROMAZEPAM [Suspect]
     Active Substance: BROMAZEPAM
     Indication: ANXIETY
     Dosage: 5 MG, QD
     Route: 048
     Dates: start: 20140305, end: 20140310
  3. AZATHIOPRINE. [Suspect]
     Active Substance: AZATHIOPRINE
     Indication: RENAL TRANSPLANT
     Dosage: 50 MG, QD
     Route: 048
     Dates: start: 2007, end: 20140317

REACTIONS (4)
  - Drug interaction [Unknown]
  - Pneumonia [Fatal]
  - Septic shock [Fatal]
  - Respiratory distress [Recovering/Resolving]

NARRATIVE: CASE EVENT DATE: 20140310
